FAERS Safety Report 4294784-3 (Version None)
Quarter: 2004Q1

REPORT INFORMATION
  Report Type: 
  Country: None (occurrence: None)
  Receive Date: 20040216
  Receipt Date: 20040205
  Transmission Date: 20041129
  Serious: Yes (Hospitalization)
  Sender: FDA-Public Use
  Company Number: 200410520FR

PATIENT
  Age: 72 Year
  Sex: Female
  Weight: 48 kg

DRUGS (3)
  1. TAXOTERE [Suspect]
     Indication: PANCREATIC CARCINOMA
     Route: 042
     Dates: start: 20031202, end: 20031202
  2. FLUOROURACIL [Suspect]
     Indication: PANCREATIC CARCINOMA
     Route: 042
     Dates: start: 20031124
  3. RADIOTHERAPY [Suspect]
     Indication: PANCREATIC CARCINOMA
     Dates: start: 20031124

REACTIONS (10)
  - BLOOD CREATININE DECREASED [None]
  - BLOOD MAGNESIUM DECREASED [None]
  - DIARRHOEA [None]
  - GENERAL PHYSICAL HEALTH DETERIORATION [None]
  - HAEMOGLOBIN DECREASED [None]
  - HYPOKALAEMIA [None]
  - NAUSEA [None]
  - PYREXIA [None]
  - VOMITING [None]
  - WHITE BLOOD CELL COUNT DECREASED [None]
